FAERS Safety Report 6258879-7 (Version None)
Quarter: 2009Q3

REPORT INFORMATION
  Report Type: 
  Country: None (occurrence: None)
  Receive Date: 20090707
  Receipt Date: 20090706
  Transmission Date: 20100115
  Serious: Yes (Disabling)
  Sender: FDA-Public Use
  Company Number: DK-BRISTOL-MYERS SQUIBB COMPANY-14689392

PATIENT
  Age: 53 Year
  Sex: Female
  Weight: 73 kg

DRUGS (2)
  1. TAXOL [Suspect]
     Indication: OVARIAN CANCER
     Dosage: CONCENTRATE FOR SOLUTION FOR INFUSION 6 MG/ML INITIATED ON 19OCT06.
     Route: 042
     Dates: start: 20070522, end: 20070522
  2. CARBOPLATIN [Concomitant]
     Indication: OVARIAN CANCER
     Dosage: INITIATED ON 19OCT06.
     Route: 042
     Dates: start: 20070522, end: 20070522

REACTIONS (1)
  - SYSTEMIC SCLEROSIS [None]
